FAERS Safety Report 7996257-0 (Version None)
Quarter: 2011Q4

REPORT INFORMATION
  Report Type: 
  Country: None (occurrence: None)
  Receive Date: 20111220
  Receipt Date: 20111216
  Transmission Date: 20120403
  Serious: No
  Sender: FDA-Public Use
  Company Number: US-BAYER-2011-121964

PATIENT
  Age: 80 Year
  Sex: Male
  Weight: 73 kg

DRUGS (9)
  1. ONE A DAY ENERGY [Concomitant]
  2. SIMVASTATIN [Concomitant]
  3. PRESERVISION EYE VITAMIN AND MINERAL SUPPL. [Concomitant]
  4. METOPROLOL TARTRATE [Concomitant]
  5. LISINOPRIL [Concomitant]
  6. FISH OIL [Concomitant]
  7. STOOL SOFTENER [Concomitant]
  8. ALEVE (CAPLET) [Suspect]
     Indication: MYALGIA
     Dosage: UNK UNK, BID
     Dates: start: 20111011, end: 20111216
  9. ASPIRIN [Concomitant]

REACTIONS (2)
  - ABDOMINAL DISCOMFORT [None]
  - NO ADVERSE EVENT [None]
